FAERS Safety Report 24651213 (Version 9)
Quarter: 2025Q4

REPORT INFORMATION
  Report Type: Spontaneous
  Country: JP (occurrence: JP)
  Receive Date: 20241122
  Receipt Date: 20251219
  Transmission Date: 20260118
  Serious: Yes (Death, Hospitalization, Other)
  Sender: GENMAB
  Company Number: JP-GENMAB-2024-04054

PATIENT
  Age: 85 Year
  Sex: Female

DRUGS (5)
  1. EPKINLY [Suspect]
     Active Substance: EPCORITAMAB-BYSP
     Indication: Diffuse large B-cell lymphoma refractory
     Dosage: UNK, THE FIRST AND THE SECOND ADMINISTRATION IN CYCLE 1
     Route: 058
     Dates: start: 20240819, end: 202408
  2. EPKINLY [Suspect]
     Active Substance: EPCORITAMAB-BYSP
     Dosage: 48 MILLIGRAM, FROM THE THIRD ADMINISTRATION IN CYCLE1 TO CYCLE 5
     Route: 058
     Dates: start: 20240902, end: 2025
  3. DECADRON [Concomitant]
     Active Substance: DEXAMETHASONE
     Indication: Prophylaxis
     Dosage: 16 MILLIGRAM, AT THE FIRST ADMINISTRATION IN CYCLE1, ON DAY 2, DAY 3 AND DAY 4 OF THE THIRD ADMINIST
     Dates: start: 20240820, end: 202409
  4. DIPHENHYDRAMINE [Concomitant]
     Active Substance: DIPHENHYDRAMINE
     Indication: Prophylaxis
     Dosage: 50 MILLIGRAM, ON DAY 1 OF ADMINISTRATION OF EPKINLY, FROM THE FIRST TO THE FOURTH ADMINISTRATION IN
     Dates: start: 20240819, end: 202409
  5. CALONAL [Concomitant]
     Active Substance: ACETAMINOPHEN
     Indication: Prophylaxis
     Dosage: 1000 MILLIGRAM, ON DAY 1 OF ADMINISTRATION OF EPKINLY, FROM THE FIRST TO THE FOURTH ADMINISTRATION I
     Dates: start: 20240819, end: 202409

REACTIONS (5)
  - Death [Fatal]
  - Hypogammaglobulinaemia [Unknown]
  - Cytomegalovirus infection reactivation [Recovered/Resolved]
  - Cytokine release syndrome [Recovered/Resolved]
  - Hypoalbuminaemia [Unknown]

NARRATIVE: CASE EVENT DATE: 20240101
